FAERS Safety Report 5787561-5 (Version None)
Quarter: 2008Q2

REPORT INFORMATION
  Report Type: 
  Country: None (occurrence: None)
  Receive Date: 20080625
  Receipt Date: 20080201
  Transmission Date: 20081010
  Serious: No
  Sender: FDA-Public Use
  Company Number: US-ASTRAZENECA-2007UW22605

PATIENT
  Age: 57 Year
  Sex: Male
  Weight: 81.6 kg

DRUGS (5)
  1. PULMICORT TH [Suspect]
     Indication: ASTHMA
     Dosage: ONE PUFF QD
     Route: 055
  2. ALBUTEROL [Concomitant]
     Route: 055
  3. BUPRIRION [Concomitant]
  4. LISINOPRIL [Concomitant]
  5. NORVASC [Concomitant]

REACTIONS (3)
  - DRUG INEFFECTIVE [None]
  - DYSPNOEA [None]
  - WHEEZING [None]
